FAERS Safety Report 7853207-5 (Version None)
Quarter: 2011Q4

REPORT INFORMATION
  Report Type: 
  Country: None (occurrence: None)
  Receive Date: 20111026
  Receipt Date: 20110426
  Transmission Date: 20120403
  Serious: No
  Sender: FDA-Public Use
  Company Number: US-BAYER-2011-037051

PATIENT
  Age: 39 Year
  Sex: Female
  Weight: 93 kg

DRUGS (3)
  1. ALEVE (CAPLET) [Suspect]
     Dosage: UNK
     Route: 048
     Dates: start: 20110301
  2. ACETYLSALICYLIC ACID SRT [Suspect]
     Route: 048
  3. LEVAQUIN [Concomitant]
     Indication: LARYNGITIS

REACTIONS (8)
  - ABDOMINAL DISCOMFORT [None]
  - METRORRHAGIA [None]
  - NO ADVERSE EVENT [None]
  - DYSMENORRHOEA [None]
  - MUSCULOSKELETAL PAIN [None]
  - DIZZINESS [None]
  - FATIGUE [None]
  - NAUSEA [None]
